FAERS Safety Report 19149895 (Version 1)
Quarter: 2021Q2

REPORT INFORMATION
  Report Type: Report from Study
  Country: US (occurrence: US)
  Receive Date: 20210417
  Receipt Date: 20210417
  Transmission Date: 20210717
  Serious: Yes (Hospitalization, Other)
  Sender: FDA-Public Use
  Company Number: US-UCBSA-2021017592

PATIENT
  Age: 67 Year
  Sex: Male
  Weight: 100.7 kg

DRUGS (1)
  1. BRIVARACETAM [Suspect]
     Active Substance: BRIVARACETAM
     Indication: PRODUCT USED FOR UNKNOWN INDICATION
     Dosage: 150 MILLIGRAM, 3X/DAY (TID)

REACTIONS (5)
  - Somnambulism [Unknown]
  - Fall [Unknown]
  - Product use issue [Unknown]
  - Head injury [Unknown]
  - Overdose [Unknown]

NARRATIVE: CASE EVENT DATE: 20210105
